FAERS Safety Report 9227061 (Version 2)
Quarter: 2013Q2

REPORT INFORMATION
  Report Type: Spontaneous
  Country: NL (occurrence: None)
  Receive Date: 20130410
  Receipt Date: 20130418
  Transmission Date: 20140414
  Serious: Yes (Life-Threatening, Hospitalization, Other)
  Sender: FDA-Public Use
  Company Number: 2013P1004644

PATIENT
  Age: 37 Year
  Sex: Female
  Weight: 71.85 kg

DRUGS (14)
  1. ZANTAC 2ML VIAL (NO PREF. NAME) [Suspect]
     Dosage: 2 ML; QW; IV
     Route: 042
     Dates: start: 20130201, end: 20130201
  2. OXYNORM [Concomitant]
  3. X-PRAEP [Concomitant]
  4. LACTULOSE [Concomitant]
  5. PARACETAMOL [Concomitant]
  6. NORTRILEN [Concomitant]
  7. PANTOPRAZOLE [Concomitant]
  8. GABAPENTIN [Concomitant]
  9. OXYCONTIN [Concomitant]
  10. GRANISETRON HYDROCHLORIDE [Concomitant]
  11. PACLITAXEL [Concomitant]
  12. CARBOPLATIN [Concomitant]
  13. DEXAMETHASONE [Concomitant]
  14. TAVEGIL [Concomitant]

REACTIONS (4)
  - Hypotension [None]
  - Hypersensitivity [None]
  - Dyspnoea [None]
  - Chest discomfort [None]
